FAERS Safety Report 9160678 (Version 1)
Quarter: 2013Q1

REPORT INFORMATION
  Report Type: Spontaneous
  Country: US (occurrence: US)
  Receive Date: 20130313
  Receipt Date: 20130313
  Transmission Date: 20140127
  Serious: No
  Sender: FDA-Public Use
  Company Number: US-ABBOTT-12P-163-0990716-00

PATIENT
  Sex: Male
  Weight: 75.82 kg

DRUGS (4)
  1. DEPAKOTE [Suspect]
     Indication: BIPOLAR DISORDER
  2. LYRICA [Suspect]
     Indication: ALCOHOLISM
     Dates: start: 201209
  3. REMERON [Suspect]
     Indication: SLEEP DISORDER
     Dosage: 15MG DAILY
  4. ZOLOFT [Concomitant]
     Indication: DEPRESSION
     Dosage: 50 MILLIGRAM DAILY

REACTIONS (6)
  - Liver disorder [Unknown]
  - Weight increased [Unknown]
  - Drug ineffective [Unknown]
  - Weight decreased [Unknown]
  - Fall [Unknown]
  - Joint injury [Unknown]
